FAERS Safety Report 8615731-7 (Version None)
Quarter: 2012Q3

REPORT INFORMATION
  Report Type: 
  Country: None (occurrence: None)
  Receive Date: 20120823
  Receipt Date: 20120807
  Transmission Date: 20120928
  Serious: Yes (Hospitalization, Other)
  Sender: FDA-Public Use
  Company Number: FR-ASTRAZENECA-2012SE50862

PATIENT
  Age: 431 Month
  Sex: Female
  Weight: 55 kg

DRUGS (8)
  1. LITHIUM CARBONATE [Concomitant]
     Route: 048
  2. LEVOTHYROXINE SODIUM [Concomitant]
     Route: 048
  3. ESPERAL [Concomitant]
     Route: 048
  4. SEROQUEL [Suspect]
     Indication: BIPOLAR DISORDER
     Route: 048
  5. LEPTICUR [Suspect]
     Indication: DYSKINESIA
     Route: 048
     Dates: end: 20120626
  6. TERCIAN [Concomitant]
     Route: 048
  7. ANAFRANIL [Concomitant]
     Route: 048
  8. LAMICTAL [Concomitant]
     Route: 048

REACTIONS (12)
  - INTENTIONAL DRUG MISUSE [None]
  - BALLISMUS [None]
  - FUNGAL INFECTION [None]
  - DIARRHOEA [None]
  - ANXIETY [None]
  - DRUG WITHDRAWAL SYNDROME [None]
  - ABDOMINAL PAIN [None]
  - STATUS EPILEPTICUS [None]
  - CHOREA [None]
  - UNDERDOSE [None]
  - ELECTROCARDIOGRAM QT PROLONGED [None]
  - SPEECH DISORDER [None]
